FAERS Safety Report 23742418 (Version 1)
Quarter: 2024Q2

REPORT INFORMATION
  Report Type: Spontaneous
  Country: US (occurrence: None)
  Receive Date: 20240412
  Receipt Date: 20240412
  Transmission Date: 20240716
  Serious: Yes (Other)
  Sender: FDA-Public Use
  Company Number: None

PATIENT
  Age: 77 Year
  Sex: Female
  Weight: 69.75 kg

DRUGS (7)
  1. GADOBENATE DIMEGLUMINE [Suspect]
     Active Substance: GADOBENATE DIMEGLUMINE
     Dates: start: 20240409
  2. LIPITOR [Concomitant]
     Active Substance: ATORVASTATIN CALCIUM
  3. METOPROLOL [Concomitant]
     Active Substance: METOPROLOL
  4. ELIQUIS [Concomitant]
     Active Substance: APIXABAN
  5. SIMVASTATIN [Concomitant]
     Active Substance: SIMVASTATIN
  6. VITAMIN D [Concomitant]
     Active Substance: VITAMIN D NOS
  7. VITAMINS [Concomitant]
     Active Substance: VITAMINS

REACTIONS (5)
  - Dysgeusia [None]
  - Oral discomfort [None]
  - Diarrhoea [None]
  - Muscle contractions involuntary [None]
  - Eructation [None]

NARRATIVE: CASE EVENT DATE: 20240409
